FAERS Safety Report 4845906-4 (Version None)
Quarter: 2005Q4

REPORT INFORMATION
  Report Type: 
  Country: None (occurrence: None)
  Receive Date: 20051201
  Receipt Date: 20051122
  Transmission Date: 20060501
  Serious: Yes (Other)
  Sender: FDA-Public Use
  Company Number: 2005-11-1387

PATIENT
  Age: 85 Year
  Sex: Male
  Weight: 37 kg

DRUGS (6)
  1. CELESTAMINE (BETAMETHASONE/DEXCHLORPHENIRAMINE MALEATE TABLETS  ^LIKE [Suspect]
     Indication: PRURITUS
     Dosage: 1 TAB ORAL
     Route: 048
     Dates: start: 20051109, end: 20051118
  2. NAFTOPIDIL [Concomitant]
  3. LOXOPROFEN SODIUM [Concomitant]
  4. AZULENE SULFONATE SODIUM/L-GLUTAMINE GRANULES [Concomitant]
  5. BUFFERIN [Concomitant]
  6. NORVASC [Concomitant]

REACTIONS (2)
  - HALLUCINATION [None]
  - INSOMNIA [None]
